FAERS Safety Report 5284493-6 (Version None)
Quarter: 2007Q1

REPORT INFORMATION
  Report Type: 
  Country: None (occurrence: None)
  Receive Date: 20061228
  Receipt Date: 20060524
  Transmission Date: 20070707
  Serious: Yes (Other)
  Sender: FDA-Public Use
  Company Number: 145926USA

PATIENT
  Age: 34 Year
  Sex: Male

DRUGS (3)
  1. CLOZAPINE [Suspect]
     Indication: SCHIZOAFFECTIVE DISORDER
     Dosage: 700 MG
     Dates: start: 19990301
  2. LITHIUM CARBONATE [Concomitant]
  3. CYMBALTA [Concomitant]

REACTIONS (1)
  - LEUKOCYTOSIS [None]
